FAERS Safety Report 15107125 (Version 1)
Quarter: 2018Q3

REPORT INFORMATION
  Report Type: Spontaneous
  Country: US (occurrence: US)
  Receive Date: 20180704
  Receipt Date: 20180704
  Transmission Date: 20181010
  Serious: Yes (Other)
  Sender: FDA-Public Use
  Company Number: US-AUROBINDO-AUR-APL-2018-033298

PATIENT
  Age: 39 Year
  Sex: Male

DRUGS (6)
  1. BACLOFEN. [Suspect]
     Active Substance: BACLOFEN
     Indication: PAIN MANAGEMENT
     Dosage: 6 OPTIONAL DAILY BOLUS DOSES OF 0.100 MG HYDROMORPHONE, 1.8 MCG BACLOFEN AND 0.013 MG BUPIVACAINE
     Route: 050
  2. BUPIVACAINE HYDROCHLORIDE. [Suspect]
     Active Substance: BUPIVACAINE HYDROCHLORIDE
     Indication: PAIN MANAGEMENT
     Dosage: 6 OPTIONAL DAILY BOLUS DOSES OF 0.100 MG HYDROMORPHONE, 1.8 MCG BACLOFEN AND 0.013 MG BUPIVACAINE
     Route: 050
  3. HYDROMORPHONE [Suspect]
     Active Substance: HYDROMORPHONE
     Dosage: 24.506 MG/DAY
     Route: 037
  4. BACLOFEN. [Suspect]
     Active Substance: BACLOFEN
     Route: 037
  5. BUPIVACAINE HYDROCHLORIDE. [Suspect]
     Active Substance: BUPIVACAINE HYDROCHLORIDE
     Dosage: 3.3431 MG/DAY BUPIVACAINE
     Route: 037
  6. HYDROMORPHONE [Suspect]
     Active Substance: HYDROMORPHONE
     Indication: PAIN MANAGEMENT
     Dosage: 6 OPTIONAL DAILY BOLUS DOSES OF 0.100 MG HYDROMORPHONE, 1.8 MCG BACLOFEN AND 0.013 MG BUPIVACAINE
     Route: 050

REACTIONS (4)
  - Nervous system disorder [Unknown]
  - Drug level increased [Unknown]
  - Arachnoiditis [Unknown]
  - Overdose [Unknown]
